FAERS Safety Report 19907961 (Version 2)
Quarter: 2021Q4

REPORT INFORMATION
  Report Type: Spontaneous
  Country: US (occurrence: US)
  Receive Date: 20211001
  Receipt Date: 20211220
  Transmission Date: 20220303
  Serious: Yes (Hospitalization, Other)
  Sender: FDA-Public Use
  Company Number: US-SUNOVION-2021SUN003728

PATIENT
  Age: 78 Year
  Sex: Male

DRUGS (1)
  1. LONHALA MAGNAIR [Suspect]
     Active Substance: GLYCOPYRROLATE
     Dosage: 25 ?G
     Route: 055
     Dates: start: 2019

REACTIONS (8)
  - Near death experience [Unknown]
  - Illness [Unknown]
  - Malaise [Unknown]
  - Device difficult to use [Unknown]
  - Device issue [Unknown]
  - Device power source issue [Unknown]
  - Product dose omission issue [Unknown]
  - Incorrect dose administered [Unknown]
